FAERS Safety Report 5237808-9 (Version None)
Quarter: 2007Q1

REPORT INFORMATION
  Report Type: 
  Country: None (occurrence: None)
  Receive Date: 20070214
  Receipt Date: 20070208
  Transmission Date: 20070707
  Serious: Yes (Other)
  Sender: FDA-Public Use
  Company Number: FR-ALLERGAN-0608693US

PATIENT
  Age: 39 Year
  Sex: Female

DRUGS (2)
  1. BOTOX 100 UNITS [Suspect]
     Indication: SKIN WRINKLING
     Dosage: UNK, SINGLE
     Route: 030
     Dates: start: 20051219, end: 20051219
  2. HYDRAFILL [Suspect]
     Indication: DRUG USE FOR UNKNOWN INDICATION
     Dates: start: 20051219, end: 20051219

REACTIONS (3)
  - EYELID OEDEMA [None]
  - EYELID PAIN [None]
  - HAEMATOMA [None]
